FAERS Safety Report 10996103 (Version 1)
Quarter: 2015Q2

REPORT INFORMATION
  Report Type: Spontaneous
  Country: NL (occurrence: NL)
  Receive Date: 20150407
  Receipt Date: 20150407
  Transmission Date: 20150821
  Serious: Yes (Hospitalization)
  Sender: FDA-Public Use
  Company Number: NL-SYMPLMED PHARMACEUTICALS-2015SYM00046

PATIENT
  Age: 65 Year
  Sex: Female
  Weight: 98 kg

DRUGS (6)
  1. SOTALOL. [Suspect]
     Active Substance: SOTALOL
     Dosage: 20 MG, BID
     Route: 048
  2. LERCANIDIPINE [Suspect]
     Active Substance: LERCANIDIPINE
     Indication: MYOCARDIAL INFARCTION
     Dosage: 10 MG, UNK
     Route: 048
     Dates: start: 20101101
  3. PHENPROCOUMON [Suspect]
     Active Substance: PHENPROCOUMON
     Indication: MYOCARDIAL INFARCTION
     Dosage: 8 MG, UNK
     Route: 048
     Dates: start: 20101101
  4. FUROSEMIDE. [Suspect]
     Active Substance: FUROSEMIDE
     Indication: MYOCARDIAL INFARCTION
     Dosage: 40 MG, BID
     Route: 048
     Dates: start: 20101101
  5. SOTALOL. [Suspect]
     Active Substance: SOTALOL
     Indication: ATRIAL FIBRILLATION
     Dosage: 40 MG, TID
     Route: 048
     Dates: start: 20101101
  6. ACEON [Suspect]
     Active Substance: PERINDOPRIL ERBUMINE
     Indication: MYOCARDIAL INFARCTION
     Dosage: 2 MG, UNK
     Route: 048
     Dates: start: 20101101

REACTIONS (9)
  - Oedema peripheral [Not Recovered/Not Resolved]
  - Depressed mood [Not Recovered/Not Resolved]
  - Memory impairment [Not Recovered/Not Resolved]
  - Fatigue [Not Recovered/Not Resolved]
  - Hypertension [Not Recovered/Not Resolved]
  - Renal impairment [Not Recovered/Not Resolved]
  - Sleep disorder [Not Recovered/Not Resolved]
  - Blood potassium increased [Not Recovered/Not Resolved]
  - Weight increased [Not Recovered/Not Resolved]

NARRATIVE: CASE EVENT DATE: 20110301
